FAERS Safety Report 14149394 (Version 3)
Quarter: 2018Q3

REPORT INFORMATION
  Report Type: Spontaneous
  Country: US (occurrence: US)
  Receive Date: 20171101
  Receipt Date: 20180709
  Transmission Date: 20181010
  Serious: No
  Sender: FDA-Public Use
  Company Number: US-PFIZER INC-2017466922

PATIENT
  Sex: Female

DRUGS (1)
  1. SUTENT [Suspect]
     Active Substance: SUNITINIB MALATE
     Dosage: UNK

REACTIONS (7)
  - Skin exfoliation [Unknown]
  - Oral discomfort [Unknown]
  - Eczema [Unknown]
  - Erythema [Unknown]
  - Skin burning sensation [Unknown]
  - Exposure to body fluid [Unknown]
  - Burning sensation [Unknown]
